FAERS Safety Report 13731545 (Version 1)
Quarter: 2017Q3

REPORT INFORMATION
  Report Type: Spontaneous
  Country: US (occurrence: US)
  Receive Date: 20170707
  Receipt Date: 20170707
  Transmission Date: 20171127
  Serious: No
  Sender: FDA-Public Use
  Company Number: US-009507513-1707USA000088

PATIENT

DRUGS (1)
  1. MOMETASONE FUROATE (ORAL) [Suspect]
     Active Substance: MOMETASONE FUROATE

REACTIONS (3)
  - Sinus pain [Unknown]
  - Oropharyngeal pain [Unknown]
  - Feeling abnormal [Unknown]
